FAERS Safety Report 5150129-8 (Version None)
Quarter: 2006Q4

REPORT INFORMATION
  Report Type: 
  Country: None (occurrence: None)
  Receive Date: 20061114
  Receipt Date: 20061019
  Transmission Date: 20070319
  Serious: Yes (Hospitalization, Congenital Anomaly, Other)
  Sender: FDA-Public Use
  Company Number: ES-ABBOTT-06P-144-0347399-00

PATIENT
  Sex: Male

DRUGS (1)
  1. VALPROIC ACID [Suspect]
     Indication: DRUG EXPOSURE DURING PREGNANCY
     Route: 064

REACTIONS (29)
  - AGITATION NEONATAL [None]
  - APNOEA [None]
  - BLOOD THYROID STIMULATING HORMONE INCREASED [None]
  - CARDIAC FAILURE CONGESTIVE [None]
  - CARDIAC MURMUR [None]
  - CEREBRAL ATROPHY CONGENITAL [None]
  - CONGENITAL ANOMALY [None]
  - CONGENITAL NOSE MALFORMATION [None]
  - CRYPTORCHISM [None]
  - DYSMORPHISM [None]
  - FEEDING DISORDER [None]
  - GINGIVAL HYPERPLASIA [None]
  - HAEMATOMA [None]
  - HYPERREFLEXIA [None]
  - HYPERTELORISM OF ORBIT [None]
  - HYPERTONIA [None]
  - HYPOVENTILATION [None]
  - HYPOVENTILATION NEONATAL [None]
  - IRRITABILITY [None]
  - LIP DISORDER [None]
  - LOW SET EARS [None]
  - MULTIPLE CONGENITAL ABNORMALITIES [None]
  - PETECHIAE [None]
  - POOR SUCKING REFLEX [None]
  - PREMATURE BABY [None]
  - PULMONARY OEDEMA [None]
  - RESPIRATORY DISORDER [None]
  - RESPIRATORY DISTRESS [None]
  - TREMOR [None]
